FAERS Safety Report 11349040 (Version 1)
Quarter: 2015Q3

REPORT INFORMATION
  Report Type: Spontaneous
  Country: ZM (occurrence: ZM)
  Receive Date: 20150807
  Receipt Date: 20150807
  Transmission Date: 20151125
  Serious: Yes (Death, Other)
  Sender: FDA-Public Use
  Company Number: ZM-PFIZER INC-2015259065

PATIENT
  Age: 2 Year
  Sex: Female
  Weight: 15 kg

DRUGS (1)
  1. ZITHROMAX [Suspect]
     Active Substance: AZITHROMYCIN DIHYDRATE
     Indication: TRACHOMA
     Dosage: 250 MG (1 TABLET), SINGLE
     Route: 048
     Dates: start: 20150615, end: 20150615

REACTIONS (3)
  - Choking [Fatal]
  - Cardiac arrest [Fatal]
  - Vomiting [Unknown]

NARRATIVE: CASE EVENT DATE: 20150615
